FAERS Safety Report 5839612-7 (Version None)
Quarter: 2008Q3

REPORT INFORMATION
  Report Type: 
  Country: None (occurrence: None)
  Receive Date: 20080811
  Receipt Date: 20080805
  Transmission Date: 20090109
  Serious: Yes (Other)
  Sender: FDA-Public Use
  Company Number: GB-WYE-G01964308

PATIENT
  Age: 22 Year
  Sex: Female

DRUGS (1)
  1. EFFEXOR [Suspect]
     Dosage: UNKNOWN
     Route: 048

REACTIONS (5)
  - HYPERCALCAEMIA [None]
  - HYPERPARATHYROIDISM [None]
  - OSTEOMYELITIS [None]
  - RENAL COLIC [None]
  - RENAL FAILURE [None]
